FAERS Safety Report 8116332-X (Version None)
Quarter: 2012Q1

REPORT INFORMATION
  Report Type: 
  Country: None (occurrence: None)
  Receive Date: 20120206
  Receipt Date: 20120131
  Transmission Date: 20120608
  Serious: Yes (Hospitalization)
  Sender: FDA-Public Use
  Company Number: US-GLAXOSMITHKLINE-A0964033A

PATIENT
  Age: 26 Year
  Sex: Female

DRUGS (2)
  1. LAMOTRIGINE [Suspect]
     Indication: EPILEPSY
     Dosage: 50MG TWICE PER DAY
  2. DILANTIN [Concomitant]

REACTIONS (7)
  - HALLUCINATION, OLFACTORY [None]
  - MALAISE [None]
  - HALLUCINATION, VISUAL [None]
  - NIGHTMARE [None]
  - HALLUCINATION, GUSTATORY [None]
  - MENTAL IMPAIRMENT [None]
  - DISORIENTATION [None]
